FAERS Safety Report 10298427 (Version 9)
Quarter: 2015Q1

REPORT INFORMATION
  Report Type: Spontaneous
  Country: US (occurrence: US)
  Receive Date: 20140711
  Receipt Date: 20150311
  Transmission Date: 20150720
  Serious: Yes (Hospitalization, Congenital Anomaly, Other)
  Sender: FDA-Public Use
  Company Number: US-PFIZER INC-2013122299

PATIENT
  Sex: Female
  Weight: 3.3 kg

DRUGS (12)
  1. EFFEXOR [Suspect]
     Active Substance: VENLAFAXINE HYDROCHLORIDE
     Indication: DEPRESSION
     Dosage: 75 MG, DAILY
     Route: 064
  2. PROPOXY-N/APAP [Concomitant]
     Dosage: 100-650, UNK
     Route: 064
     Dates: start: 20050611
  3. HYDROCODONE/APAP [Concomitant]
     Active Substance: ACETAMINOPHEN\HYDROCODONE
     Dosage: UNK
     Route: 064
     Dates: start: 20050916
  4. ADVANCED-RF NATALCARE [Concomitant]
     Dosage: UNK
     Route: 064
     Dates: start: 20050406
  5. PSEUDOVENT [Concomitant]
     Dosage: 400 MG, UNK
     Route: 064
     Dates: start: 20051011
  6. AMOXICILLIN. [Concomitant]
     Active Substance: AMOXICILLIN
     Dosage: 500 MG, UNK
     Route: 064
     Dates: start: 20051011
  7. EFFEXOR XR [Concomitant]
     Active Substance: VENLAFAXINE HYDROCHLORIDE
     Dosage: 150 MG, UNK
     Route: 064
     Dates: start: 20050106
  8. ZITHROMAX [Concomitant]
     Active Substance: AZITHROMYCIN DIHYDRATE
     Dosage: 250 MG, UNK
     Route: 064
     Dates: start: 20050315
  9. NITROFURANTOIN. [Concomitant]
     Active Substance: NITROFURANTOIN
     Dosage: 100 MG, UNK
     Route: 064
     Dates: start: 20050527
  10. VENLAFAXINE HCL [Suspect]
     Active Substance: VENLAFAXINE HYDROCHLORIDE
     Dosage: UNK
     Route: 064
  11. CIPROFLOXACIN. [Concomitant]
     Active Substance: CIPROFLOXACIN
     Dosage: 250 MG, UNK
     Route: 064
     Dates: start: 20050207
  12. ADVAIR HFA [Concomitant]
     Active Substance: FLUTICASONE PROPIONATE\SALMETEROL XINAFOATE
     Dosage: 100/50 MG UNK
     Route: 064
     Dates: start: 20050315

REACTIONS (2)
  - Craniosynostosis [Unknown]
  - Maternal exposure during pregnancy [Unknown]

NARRATIVE: CASE EVENT DATE: 20051020
